FAERS Safety Report 4422844-2 (Version None)
Quarter: 2004Q3

REPORT INFORMATION
  Report Type: 
  Country: None (occurrence: None)
  Receive Date: 20040806
  Receipt Date: 20040721
  Transmission Date: 20050211
  Serious: Yes (Hospitalization, Other)
  Sender: FDA-Public Use
  Company Number: USA040773330

PATIENT
  Age: 82 Year
  Sex: Female
  Weight: 68 kg

DRUGS (5)
  1. FORTEO [Suspect]
     Indication: OSTEOPOROSIS
     Dosage: 20 UG DAY
     Dates: start: 20040202, end: 20040707
  2. GLUCOSAMINE [Concomitant]
  3. CELEBREX [Concomitant]
  4. CALCIUM CARBOANTE [Concomitant]
  5. SYNTHROID [Concomitant]

REACTIONS (3)
  - LESION OF SCIATIC NERVE [None]
  - PAIN IN EXTREMITY [None]
  - PHARMACEUTICAL PRODUCT COMPLAINT [None]
